FAERS Safety Report 25193364 (Version 4)
Quarter: 2025Q3

REPORT INFORMATION
  Report Type: Spontaneous
  Country: EU (occurrence: EU)
  Receive Date: 20250414
  Receipt Date: 20250809
  Transmission Date: 20251021
  Serious: Yes (Death, Hospitalization)
  Sender: ALEXION PHARMACEUTICALS
  Company Number: EU-ASTRAZENECA-202504EEA009096NO

PATIENT
  Age: 77 Year
  Sex: Female
  Weight: 53 kg

DRUGS (12)
  1. IMFINZI [Suspect]
     Active Substance: DURVALUMAB
     Dosage: 1500 MILLIGRAM, Q4W
     Dates: start: 20240507, end: 20240708
  2. ASPIRIN [Concomitant]
     Active Substance: ASPIRIN
     Route: 065
  3. BECLOMETHASONE DIPROPIONATE\FORMOTEROL FUMARATE\GLYCOPYRROLATE [Concomitant]
     Active Substance: BECLOMETHASONE DIPROPIONATE\FORMOTEROL FUMARATE\GLYCOPYRROLATE
     Route: 065
  4. PLAVIX [Concomitant]
     Active Substance: CLOPIDOGREL BISULFATE
     Route: 065
  5. LEVOTHYROXINE SODIUM [Concomitant]
     Active Substance: LEVOTHYROXINE SODIUM
     Route: 065
  6. LACTULOSE [Concomitant]
     Active Substance: LACTULOSE
     Route: 065
  7. NICOTINE [Concomitant]
     Active Substance: NICOTINE
     Route: 065
  8. ACETAMINOPHEN [Concomitant]
     Active Substance: ACETAMINOPHEN
     Route: 065
  9. VENTOLIN [Concomitant]
     Active Substance: ALBUTEROL SULFATE
     Route: 065
  10. SIMVASTATIN [Concomitant]
     Active Substance: SIMVASTATIN
     Route: 065
  11. ZOPICLONE [Concomitant]
     Active Substance: ZOPICLONE
     Route: 065
  12. MAGNESIUM [Concomitant]
     Active Substance: MAGNESIUM
     Route: 065

REACTIONS (14)
  - Pneumonitis [Fatal]
  - Headache [Fatal]
  - Dizziness [Fatal]
  - Fatigue [Fatal]
  - Cerebrovascular accident [Fatal]
  - Dyspnoea [Fatal]
  - Gait inability [Fatal]
  - Palpitations [Fatal]
  - Chest pain [Fatal]
  - Influenza [Fatal]
  - Restlessness [Fatal]
  - Right ventricle outflow tract obstruction [Fatal]
  - Pulmonary hypertension [Fatal]
  - Visual acuity reduced [Fatal]

NARRATIVE: CASE EVENT DATE: 20241220
